FAERS Safety Report 10159439 (Version 1)
Quarter: 2014Q2

REPORT INFORMATION
  Report Type: Spontaneous
  Country: US (occurrence: US)
  Receive Date: 20140508
  Receipt Date: 20140508
  Transmission Date: 20141212
  Serious: Yes (Other)
  Sender: FDA-Public Use
  Company Number: US-ELI_LILLY_AND_COMPANY-US201405000349

PATIENT
  Sex: Male

DRUGS (11)
  1. CYMBALTA [Suspect]
     Indication: PAIN
     Dosage: 30 MG, QD
     Route: 065
     Dates: start: 201403
  2. CYMBALTA [Suspect]
     Indication: DEPRESSION
     Dosage: 60 MG, BID
     Route: 065
     Dates: end: 201403
  3. TYLENOL                            /00020001/ [Suspect]
     Indication: PAIN
     Dosage: 6000 MG, QD
  4. ZOLOFT [Concomitant]
  5. CELEBREX [Concomitant]
     Dosage: 200 MG, BID
  6. LITHIUM [Concomitant]
     Dosage: 300 MG, BID
  7. BROMIDEM [Concomitant]
     Dosage: 60 MG, UNK
  8. FIORICET [Concomitant]
  9. LORAZEPAM [Concomitant]
     Dosage: 1 MG, QID
  10. FLEXERIL                           /00428402/ [Concomitant]
  11. TRICYCLIC ANTIDEPRESSANTS [Concomitant]

REACTIONS (3)
  - Toxicity to various agents [Unknown]
  - Drug ineffective [Unknown]
  - Dyskinesia [Unknown]
